FAERS Safety Report 7454090-2 (Version None)
Quarter: 2011Q2

REPORT INFORMATION
  Report Type: 
  Country: None (occurrence: None)
  Receive Date: 20110503
  Receipt Date: 20110426
  Transmission Date: 20111010
  Serious: Yes (Other)
  Sender: FDA-Public Use
  Company Number: US-BRISTOL-MYERS SQUIBB COMPANY-15697154

PATIENT
  Age: 52 Year
  Sex: Female

DRUGS (5)
  1. LISINOPRIL [Concomitant]
  2. HYDROCODONE BITARTRATE [Concomitant]
     Indication: PAIN
  3. XANAX [Concomitant]
     Indication: ANXIETY
  4. GLUCOPHAGE [Suspect]
     Indication: DIABETES MELLITUS
  5. LASIX [Concomitant]

REACTIONS (2)
  - DIVERTICULUM INTESTINAL HAEMORRHAGIC [None]
  - MEDICATION RESIDUE [None]
